FAERS Safety Report 6777853-5 (Version None)
Quarter: 2010Q2

REPORT INFORMATION
  Report Type: 
  Country: None (occurrence: None)
  Receive Date: 20100618
  Receipt Date: 20100603
  Transmission Date: 20101027
  Serious: Yes (Other)
  Sender: FDA-Public Use
  Company Number: GB-MYLANLABS-2010S1009848

PATIENT
  Sex: Male

DRUGS (3)
  1. AZATHIOPRINE [Suspect]
     Indication: DRUG USE FOR UNKNOWN INDICATION
  2. CAPECITABINE [Interacting]
     Indication: DRUG USE FOR UNKNOWN INDICATION
  3. OXALIPLATIN [Interacting]
     Indication: DRUG USE FOR UNKNOWN INDICATION

REACTIONS (3)
  - CHEST PAIN [None]
  - DRUG INTERACTION [None]
  - THROMBOCYTOPENIA [None]
